FAERS Safety Report 16467136 (Version 1)
Quarter: 2019Q2

REPORT INFORMATION
  Report Type: Spontaneous
  Country: GB (occurrence: GB)
  Receive Date: 20190624
  Receipt Date: 20190624
  Transmission Date: 20190711
  Serious: Yes (Hospitalization)
  Sender: FDA-Public Use
  Company Number: GB-ACCORD-134731

PATIENT
  Age: 45 Year
  Sex: Female
  Weight: 82.15 kg

DRUGS (14)
  1. TRAZODONE [Concomitant]
     Active Substance: TRAZODONE HYDROCHLORIDE
  2. SALBUTAMOL [Concomitant]
     Active Substance: ALBUTEROL
  3. THIAMINE. [Concomitant]
     Active Substance: THIAMINE
  4. OMEPRAZOLE. [Concomitant]
     Active Substance: OMEPRAZOLE
  5. SERTRALINE [Suspect]
     Active Substance: SERTRALINE HYDROCHLORIDE
     Indication: DEPRESSION
     Dosage: IN THE MORNING
     Route: 048
     Dates: start: 20180901, end: 20190507
  6. COLECALCIFEROL [Concomitant]
     Active Substance: CHOLECALCIFEROL
  7. PROPRANOLOL [Concomitant]
     Active Substance: PROPRANOLOL HYDROCHLORIDE
  8. OXYCODONE [Concomitant]
     Active Substance: OXYCODONE
  9. CHLORDIAZEPOXIDE. [Concomitant]
     Active Substance: CHLORDIAZEPOXIDE
  10. PABRINEX [Concomitant]
     Active Substance: ASCORBIC ACID\VITAMIN B COMPLEX
  11. DICLOFENAC [Concomitant]
     Active Substance: DICLOFENAC
  12. PHYTOMENADIONE [Concomitant]
     Active Substance: PHYTONADIONE
  13. BACLOFEN. [Concomitant]
     Active Substance: BACLOFEN
  14. PROCHLORPERAZINE. [Concomitant]
     Active Substance: PROCHLORPERAZINE

REACTIONS (4)
  - Hallucination, auditory [Unknown]
  - Withdrawal syndrome [Unknown]
  - Electrocardiogram QT prolonged [Recovering/Resolving]
  - Alcohol withdrawal syndrome [Unknown]

NARRATIVE: CASE EVENT DATE: 20190506
